FAERS Safety Report 9947859 (Version 2)
Quarter: 2014Q1

REPORT INFORMATION
  Report Type: Report from Study
  Country: US (occurrence: US)
  Receive Date: 20140303
  Receipt Date: 20140303
  Transmission Date: 20141002
  Serious: Yes (Other)
  Sender: FDA-Public Use
  Company Number: US-ABBVIE-12P-163-1006659-00

PATIENT
  Age: 59 Year
  Sex: Male

DRUGS (10)
  1. HUMIRA [Suspect]
     Indication: CROHN^S DISEASE
  2. 6MP [Concomitant]
     Indication: CROHN^S DISEASE
     Dosage: 100 MG DAILY
  3. COUMADIN [Concomitant]
     Indication: THROMBOSIS
     Dosage: FOR FOUR DAYS
  4. COUMADIN [Concomitant]
     Dosage: FOR THREE DAYS
  5. SIMVASTATIN [Concomitant]
     Indication: BLOOD CHOLESTEROL INCREASED
  6. APRISO [Concomitant]
     Indication: GASTRIC DISORDER
  7. APRISO [Concomitant]
     Indication: PROPHYLAXIS
  8. APRISO [Concomitant]
     Indication: CROHN^S DISEASE
  9. LANSOPRAZOLE [Concomitant]
     Indication: DYSPEPSIA
  10. PREDNISONE [Concomitant]
     Indication: PRODUCT USED FOR UNKNOWN INDICATION

REACTIONS (2)
  - Intestinal resection [Unknown]
  - Drug ineffective [Unknown]
